FAERS Safety Report 17611320 (Version 2)
Quarter: 2020Q2

REPORT INFORMATION
  Report Type: Spontaneous
  Country: US (occurrence: US)
  Receive Date: 20200401
  Receipt Date: 20200508
  Transmission Date: 20200713
  Serious: Yes (Hospitalization)
  Sender: FDA-Public Use
  Company Number: US-ASTRAZENECA-2020SE42541

PATIENT
  Sex: Male
  Weight: 98.9 kg

DRUGS (2)
  1. SYMBICORT [Suspect]
     Active Substance: BUDESONIDE\FORMOTEROL FUMARATE DIHYDRATE
     Indication: DYSPNOEA
     Dosage: 160/4.5 MCG 120 INHALATIONS , TWO TIMES A DAY ONCE/SINGLE ADMINISTRATION
     Route: 055
     Dates: start: 20200302
  2. SYMBICORT [Suspect]
     Active Substance: BUDESONIDE\FORMOTEROL FUMARATE DIHYDRATE
     Indication: DYSPNOEA
     Dosage: 160/4.5 MCG 120 INHALATIONS ONCE/SINGLE ADMINISTRATION ONCE/SINGLE ADMINISTRATION
     Route: 055
     Dates: start: 20200227, end: 20200227

REACTIONS (3)
  - Sepsis [Unknown]
  - Product dose omission [Unknown]
  - Device defective [Unknown]
